FAERS Safety Report 9877491 (Version 1)
Quarter: 2014Q1

REPORT INFORMATION
  Report Type: Other
  Country: US (occurrence: US)
  Receive Date: 20140206
  Receipt Date: 20140206
  Transmission Date: 20141002
  Serious: No
  Sender: FDA-Public Use
  Company Number: US-ACORDA-ACO_38549_2013

PATIENT
  Age: 74 Year
  Sex: Female
  Weight: 97.52 kg

DRUGS (1)
  1. AMPYRA [Suspect]
     Indication: MULTIPLE SCLEROSIS
     Dosage: 10 MG, Q 12 HRS
     Route: 048
     Dates: start: 201308, end: 2013

REACTIONS (2)
  - Sluggishness [Unknown]
  - Headache [Recovered/Resolved]
